FAERS Safety Report 7567944-3 (Version None)
Quarter: 2011Q2

REPORT INFORMATION
  Report Type: 
  Country: None (occurrence: None)
  Receive Date: 20110623
  Receipt Date: 20110614
  Transmission Date: 20111010
  Serious: Yes (Hospitalization)
  Sender: FDA-Public Use
  Company Number: JP-B.I. PHARMACEUTICALS,INC./RIDGEFIELD-2011-BP-15856YA

PATIENT
  Age: 41 Year
  Sex: Male

DRUGS (4)
  1. FLOMOX (CEFCAPENE PIVOXIL HYDROCHLORIDE) [Concomitant]
     Indication: DYSURIA
     Route: 065
  2. TAMSULOSIN HCL [Suspect]
     Indication: DYSURIA
     Route: 065
  3. PELEX (PARACETAMOL, SALICYLAMIDE) [Concomitant]
     Indication: DIARRHOEA
  4. PELEX (PARACETAMOL, SALICYLAMIDE) [Concomitant]
     Indication: PYREXIA
     Route: 065

REACTIONS (1)
  - TOXIC EPIDERMAL NECROLYSIS [None]
